FAERS Safety Report 6107447-6 (Version None)
Quarter: 2009Q1

REPORT INFORMATION
  Report Type: 
  Country: None (occurrence: None)
  Receive Date: 20090309
  Receipt Date: 20090227
  Transmission Date: 20090719
  Serious: Yes (Hospitalization)
  Sender: FDA-Public Use
  Company Number: JP-ELI_LILLY_AND_COMPANY-JP200903001786

PATIENT
  Sex: Male
  Weight: 62 kg

DRUGS (15)
  1. PEMETREXED [Suspect]
     Indication: PLEURAL MESOTHELIOMA MALIGNANT
     Dosage: 850 MG, OTHER
     Route: 042
     Dates: start: 20080304, end: 20080509
  2. CISPLATIN [Suspect]
     Indication: PLEURAL MESOTHELIOMA MALIGNANT
     Dosage: 128 MG, OTHER
     Route: 042
     Dates: start: 20080304, end: 20080509
  3. PANVITAN [Concomitant]
     Dosage: 1 G, DAILY (1/D)
     Route: 048
     Dates: start: 20080226, end: 20080514
  4. PANVITAN [Concomitant]
     Dosage: 1 G, DAILY (1/D)
     Route: 048
     Dates: start: 20080527, end: 20080625
  5. PANVITAN [Concomitant]
     Dosage: 1 G, DAILY (1/D)
     Route: 048
     Dates: start: 20080703, end: 20080801
  6. PANVITAN [Concomitant]
     Dosage: 1 G, DAILY (1/D)
     Route: 048
     Dates: start: 20080821, end: 20080903
  7. CYANOCOBALAMIN [Concomitant]
     Dosage: 1 MG, UNK
     Route: 030
     Dates: start: 20080226, end: 20080226
  8. CYANOCOBALAMIN [Concomitant]
     Dosage: 1 MG, UNK
     Route: 030
     Dates: start: 20080520, end: 20080520
  9. NASEA-OD [Concomitant]
     Indication: PROPHYLAXIS
     Dosage: 0.1 MG, DAILY (1/D)
     Route: 048
     Dates: start: 20080304, end: 20080308
  10. NASEA-OD [Concomitant]
     Dosage: 0.1 MG, DAILY (1/D)
     Route: 048
     Dates: start: 20080403, end: 20080407
  11. CALONAL [Concomitant]
     Indication: CANCER PAIN
     Dosage: 400 MG, DAILY (1/D)
     Route: 048
     Dates: start: 20080306, end: 20080315
  12. CALONAL [Concomitant]
     Dosage: 400 MG, DAILY (1/D)
     Route: 048
     Dates: start: 20080403, end: 20080514
  13. FENTANYL [Concomitant]
     Indication: CANCER PAIN
     Dosage: 2.5 MG, DAILY (1/D)
     Route: 062
     Dates: start: 20080703, end: 20080807
  14. OXYCONTIN [Concomitant]
     Indication: CANCER PAIN
     Dosage: 40 MG, DAILY (1/D)
     Route: 048
     Dates: start: 20080731, end: 20080813
  15. PRIMPERAN /00041901/ [Concomitant]
     Indication: PROPHYLAXIS
     Dosage: 5 MG, DAILY (1/D)
     Route: 048
     Dates: start: 20080812, end: 20080816

REACTIONS (1)
  - RENAL IMPAIRMENT [None]
